FAERS Safety Report 16673156 (Version 4)
Quarter: 2019Q3

REPORT INFORMATION
  Report Type: Spontaneous
  Country: US (occurrence: US)
  Receive Date: 20190806
  Receipt Date: 20190927
  Transmission Date: 20191004
  Serious: No
  Sender: FDA-Public Use
  Company Number: US-GLAXOSMITHKLINE-US2019137584

PATIENT
  Age: 47 Year
  Sex: Female

DRUGS (1)
  1. BENLYSTA [Suspect]
     Active Substance: BELIMUMAB
     Indication: SYSTEMIC LUPUS ERYTHEMATOSUS
     Dosage: UNK
     Route: 058

REACTIONS (5)
  - Exposure via skin contact [Recovered/Resolved]
  - Laryngitis [Unknown]
  - Product complaint [Unknown]
  - Underdose [Unknown]
  - Multiple allergies [Unknown]

NARRATIVE: CASE EVENT DATE: 20190729
